FAERS Safety Report 15145601 (Version 1)
Quarter: 2018Q3

REPORT INFORMATION
  Report Type: Spontaneous
  Country: US (occurrence: US)
  Receive Date: 20180713
  Receipt Date: 20180713
  Transmission Date: 20181010
  Serious: No
  Sender: FDA-Public Use
  Company Number: US-SHIRE-US201823029

PATIENT
  Sex: Female
  Weight: 81.63 kg

DRUGS (1)
  1. XIIDRA [Suspect]
     Active Substance: LIFITEGRAST
     Indication: PRODUCT USED FOR UNKNOWN INDICATION
     Route: 047

REACTIONS (8)
  - Tremor [Unknown]
  - Visual impairment [Unknown]
  - Product container issue [Unknown]
  - Vision blurred [Unknown]
  - Product use complaint [Unknown]
  - Drug dose omission [Unknown]
  - Instillation site reaction [Unknown]
  - Corneal abrasion [Unknown]
